FAERS Safety Report 14713367 (Version 3)
Quarter: 2018Q2

REPORT INFORMATION
  Report Type: Report from Study
  Country: None (occurrence: US)
  Receive Date: 20180404
  Receipt Date: 20180518
  Transmission Date: 20180711
  Serious: Yes (Hospitalization, Other)
  Sender: FDA-Public Use
  Company Number: US-ABBVIE-18K-163-2307236-00

PATIENT
  Age: 46 Year
  Sex: Female
  Weight: 63.56 kg

DRUGS (8)
  1. HUMIRA [Suspect]
     Active Substance: ADALIMUMAB
     Indication: PSORIASIS
     Route: 058
     Dates: start: 2011
  2. BUTALBITAL [Concomitant]
     Active Substance: BUTALBITAL
     Indication: MIGRAINE
  3. FENTANYL. [Concomitant]
     Active Substance: FENTANYL
     Indication: BACK PAIN
  4. OXYCODONE [Concomitant]
     Active Substance: OXYCODONE
     Indication: BACK PAIN
  5. OMEPRAZOLE. [Concomitant]
     Active Substance: OMEPRAZOLE
     Indication: PRODUCT USED FOR UNKNOWN INDICATION
  6. CRESTOR [Concomitant]
     Active Substance: ROSUVASTATIN CALCIUM
     Indication: BLOOD CHOLESTEROL INCREASED
  7. TOPIRAMATE. [Concomitant]
     Active Substance: TOPIRAMATE
     Indication: MIGRAINE
  8. DEPAKOTE [Suspect]
     Active Substance: DIVALPROEX SODIUM
     Indication: BIPOLAR II DISORDER
     Route: 048
     Dates: start: 2011, end: 201308

REACTIONS (27)
  - Type 2 diabetes mellitus [Not Recovered/Not Resolved]
  - Pneumonia [Recovered/Resolved]
  - Weight increased [Recovered/Resolved]
  - Liver injury [Unknown]
  - Pancreatic disorder [Unknown]
  - Skin atrophy [Unknown]
  - Impaired gastric emptying [Not Recovered/Not Resolved]
  - Blood test abnormal [Unknown]
  - Psoriasis [Unknown]
  - Aggression [Recovered/Resolved]
  - Staphylococcal infection [Recovered/Resolved]
  - Overdose [Recovered/Resolved]
  - Enophthalmos [Unknown]
  - Memory impairment [Not Recovered/Not Resolved]
  - Hot flush [Not Recovered/Not Resolved]
  - Cardiac arrest [Recovered/Resolved]
  - Renal disorder [Recovered/Resolved]
  - Brain injury [Unknown]
  - Drug hypersensitivity [Not Recovered/Not Resolved]
  - Spinal column stenosis [Recovered/Resolved]
  - Speech disorder [Unknown]
  - Cyanosis [Recovered/Resolved]
  - Drug ineffective [Unknown]
  - Coma [Recovered/Resolved]
  - Road traffic accident [Unknown]
  - Spinal pain [Recovering/Resolving]
  - Hypertension [Not Recovered/Not Resolved]

NARRATIVE: CASE EVENT DATE: 2011
